FAERS Safety Report 23506224 (Version 1)
Quarter: 2024Q1

REPORT INFORMATION
  Report Type: Spontaneous
  Country: None (occurrence: DE)
  Receive Date: 20240209
  Receipt Date: 20240209
  Transmission Date: 20240410
  Serious: Yes (Other)
  Sender: FDA-Public Use
  Company Number: DE-Amphastar Pharmaceuticals, Inc.-2152897

PATIENT
  Age: 68 Year
  Sex: Male

DRUGS (3)
  1. BAQSIMI [Suspect]
     Active Substance: GLUCAGON
     Indication: Hypoglycaemia
     Route: 065
  2. ACTRAPID [Concomitant]
     Active Substance: INSULIN HUMAN
  3. INSULIN HUMAN [Concomitant]
     Active Substance: INSULIN HUMAN

REACTIONS (1)
  - Hypoglycaemia [Recovered/Resolved]
